FAERS Safety Report 8570238-0 (Version None)
Quarter: 2012Q3

REPORT INFORMATION
  Report Type: 
  Country: None (occurrence: None)
  Receive Date: 20120803
  Receipt Date: 20120727
  Transmission Date: 20120928
  Serious: Yes (Hospitalization)
  Sender: FDA-Public Use
  Company Number: DE-PFIZER INC-2012168790

PATIENT
  Age: 66 Year
  Sex: Male

DRUGS (1)
  1. TORISEL [Suspect]
     Indication: RENAL CELL CARCINOMA
     Dosage: 25 MG, UNK
     Route: 042
     Dates: start: 20120704

REACTIONS (5)
  - RENAL CELL CARCINOMA [None]
  - PARAESTHESIA [None]
  - OPTIC DISC HAEMORRHAGE [None]
  - DISEASE PROGRESSION [None]
  - CEREBRAL DISORDER [None]
